FAERS Safety Report 6901798-0 (Version None)
Quarter: 2010Q3

REPORT INFORMATION
  Report Type: 
  Country: None (occurrence: None)
  Receive Date: 20100803
  Receipt Date: 20080314
  Transmission Date: 20110219
  Serious: Yes (Other)
  Sender: FDA-Public Use
  Company Number: US-PFIZER INC-2008024582

PATIENT
  Sex: Female
  Weight: 82.727 kg

DRUGS (6)
  1. LYRICA [Suspect]
     Indication: NEUROPATHY PERIPHERAL
     Route: 048
     Dates: start: 20070730
  2. VITAMIN TAB [Concomitant]
     Dates: start: 19980101
  3. TIAZAC [Concomitant]
     Dates: start: 20040101
  4. AMITRIPTYLINE HYDROCHLORIDE [Concomitant]
     Dates: start: 20070701
  5. CARAFATE [Concomitant]
  6. VITAMIN B12 FOR INJECTION [Concomitant]

REACTIONS (1)
  - WEIGHT INCREASED [None]
